FAERS Safety Report 23975293 (Version 1)
Quarter: 2024Q2

REPORT INFORMATION
  Report Type: Spontaneous
  Country: US (occurrence: None)
  Receive Date: 20240614
  Receipt Date: 20240614
  Transmission Date: 20240716
  Serious: Yes (Hospitalization)
  Sender: FDA-Public Use
  Company Number: 2024A134005

PATIENT
  Sex: Female

DRUGS (3)
  1. TEZEPELUMAB [Suspect]
     Active Substance: TEZEPELUMAB
     Indication: Dyspnoea
     Route: 042
     Dates: start: 202312
  2. TEZEPELUMAB [Suspect]
     Active Substance: TEZEPELUMAB
     Indication: Asthma
     Route: 042
     Dates: start: 202312
  3. DUPIXENT [Concomitant]
     Active Substance: DUPILUMAB
     Indication: Dyspnoea

REACTIONS (4)
  - Illness [Recovered/Resolved]
  - Syncope [Recovered/Resolved]
  - Rhinovirus infection [Recovered/Resolved]
  - Viral infection [Recovered/Resolved]
